FAERS Safety Report 18379638 (Version 1)
Quarter: 2020Q4

REPORT INFORMATION
  Report Type: Spontaneous
  Country: US (occurrence: US)
  Receive Date: 20201014
  Receipt Date: 20201014
  Transmission Date: 20210114
  Serious: No
  Sender: FDA-Public Use
  Company Number: US-SHIRE-US202033410

PATIENT
  Sex: Male
  Weight: 88 kg

DRUGS (17)
  1. DIPHENHYDRAMINE. [Concomitant]
     Active Substance: DIPHENHYDRAMINE
  2. CIPROFLOXACIN. [Concomitant]
     Active Substance: CIPROFLOXACIN
  3. ALLOPURINOL. [Concomitant]
     Active Substance: ALLOPURINOL
  4. EPINEPHRINE. [Concomitant]
     Active Substance: EPINEPHRINE
  5. ASPIRIN (E.C.) [Concomitant]
     Active Substance: ASPIRIN
  6. MULTIVITAMINS + MINERALS PLUS LUTEIN [Concomitant]
     Active Substance: MINERALS\VITAMINS
  7. TRIAMTERENE. [Concomitant]
     Active Substance: TRIAMTERENE
  8. LMX4 [Concomitant]
     Active Substance: LIDOCAINE
  9. PROBIOTICS NOS [Concomitant]
     Active Substance: PROBIOTICS NOS
  10. LASIX [Concomitant]
     Active Substance: FUROSEMIDE
  11. GAMMAGARD LIQUID [Suspect]
     Active Substance: HUMAN IMMUNOGLOBULIN G
     Indication: IMMUNODEFICIENCY COMMON VARIABLE
     Dosage: 30 GRAM, EVERY 4 WK
     Route: 042
     Dates: start: 20191220
  12. URSODIOL. [Concomitant]
     Active Substance: URSODIOL
  13. ACETAMINOPHEN. [Concomitant]
     Active Substance: ACETAMINOPHEN
  14. SODIUM CHLORIDE. [Concomitant]
     Active Substance: SODIUM CHLORIDE
  15. NADOLOL. [Concomitant]
     Active Substance: NADOLOL
  16. FISH OIL [Concomitant]
     Active Substance: FISH OIL
  17. VITAMIN D NOS [Concomitant]
     Active Substance: VITAMIN D NOS

REACTIONS (1)
  - Hypertension [Unknown]
